FAERS Safety Report 7328234-7 (Version None)
Quarter: 2011Q1

REPORT INFORMATION
  Report Type: 
  Country: None (occurrence: None)
  Receive Date: 20110303
  Receipt Date: 20110222
  Transmission Date: 20110831
  Serious: Yes (Hospitalization)
  Sender: FDA-Public Use
  Company Number: US-SANOFI-AVENTIS-2011SA012805

PATIENT
  Age: 67 Year
  Sex: Male
  Weight: 83.3 kg

DRUGS (7)
  1. DEXAMETHASONE [Suspect]
     Indication: MULTIPLE MYELOMA
     Dosage: 20 MG CYCLIC
     Route: 048
     Dates: start: 20110117, end: 20110128
  2. ASPIRIN [Concomitant]
     Dates: start: 20110117
  3. VELCADE [Suspect]
     Indication: MULTIPLE MYELOMA
     Dosage: 1.3 MG/M2
     Route: 040
     Dates: start: 20110117, end: 20110127
  4. AMLODIPINE [Suspect]
     Route: 065
  5. FUROSEMIDE [Suspect]
     Route: 065
  6. LISINOPRIL [Suspect]
     Route: 065
  7. LENALIDOMIDE [Suspect]
     Indication: MULTIPLE MYELOMA
     Dosage: 25 MG CYCLIC
     Route: 048
     Dates: start: 20110117, end: 20110130

REACTIONS (3)
  - SYNCOPE [None]
  - ORTHOSTATIC HYPOTENSION [None]
  - DEHYDRATION [None]
